FAERS Safety Report 10265155 (Version 1)
Quarter: 2014Q2

REPORT INFORMATION
  Report Type: Spontaneous
  Country: DE (occurrence: DE)
  Receive Date: 20140627
  Receipt Date: 20140627
  Transmission Date: 20141212
  Serious: Yes (Death)
  Sender: FDA-Public Use
  Company Number: DE-TEVA-489759GER

PATIENT
  Age: 1 Year
  Sex: Female

DRUGS (4)
  1. VALPROIC ACID [Suspect]
     Indication: EPILEPSY
     Route: 065
  2. PARACETAMOL [Suspect]
     Route: 065
  3. DIAZEPAM [Suspect]
     Indication: CONVULSION
     Route: 065
  4. ASPIRIN [Suspect]
     Route: 065

REACTIONS (1)
  - Hepatic failure [Fatal]
